FAERS Safety Report 5848689-4 (Version None)
Quarter: 2008Q3

REPORT INFORMATION
  Report Type: 
  Country: None (occurrence: None)
  Receive Date: 20080814
  Receipt Date: 20080801
  Transmission Date: 20090109
  Serious: Yes (Hospitalization)
  Sender: FDA-Public Use
  Company Number: 236738J08USA

PATIENT
  Age: 43 Year
  Sex: Male
  Weight: 158.759 kg

DRUGS (5)
  1. REBIF [Suspect]
     Indication: MULTIPLE SCLEROSIS
     Dosage: 44 MCG, 3 IN 1 WEEKS, SUBCUTANEOUS
     Route: 058
     Dates: start: 20080630
  2. STEROIDS (CORTICOSTEROID NOS) [Suspect]
     Indication: OPTIC NEURITIS
     Dosage: INTRAVENOUS
     Route: 042
  3. ADVAIR (SERETIDE) [Concomitant]
  4. ALBUTEROL (SALBUTAMOL /00139501/) [Concomitant]
  5. WELLBUTRIN [Concomitant]

REACTIONS (11)
  - ASTHMA [None]
  - BLINDNESS [None]
  - BLOOD PRESSURE ABNORMAL [None]
  - CHEST DISCOMFORT [None]
  - DISEASE COMPLICATION [None]
  - EYE PAIN [None]
  - OPTIC NEURITIS [None]
  - PAIN IN EXTREMITY [None]
  - PNEUMONIA [None]
  - SWELLING [None]
  - THROMBOSIS [None]
